FAERS Safety Report 12753099 (Version 1)
Quarter: 2016Q3

REPORT INFORMATION
  Report Type: Report from Study
  Country: US (occurrence: US)
  Receive Date: 20160916
  Receipt Date: 20160916
  Transmission Date: 20161109
  Serious: Yes (Other)
  Sender: FDA-Public Use
  Company Number: US-ROCHE-1829339

PATIENT
  Age: 56 Year
  Sex: Male
  Weight: 79 kg

DRUGS (8)
  1. BEVACIZUMAB [Suspect]
     Active Substance: BEVACIZUMAB
     Indication: PANCREATIC NEOPLASM
     Dosage: OVER 30-90 MINUTES ON DAYS 1 AND 15?LAST TREATMENT RECEIVED ON 10/MAR/2010
     Route: 042
     Dates: start: 20091028
  2. TEMSIROLIMUS [Suspect]
     Active Substance: TEMSIROLIMUS
     Route: 042
     Dates: start: 20091125
  3. TEMSIROLIMUS [Suspect]
     Active Substance: TEMSIROLIMUS
     Route: 042
     Dates: start: 20091230
  4. BEVACIZUMAB [Suspect]
     Active Substance: BEVACIZUMAB
     Route: 042
     Dates: start: 20100210
  5. BEVACIZUMAB [Suspect]
     Active Substance: BEVACIZUMAB
     Route: 042
     Dates: start: 20091230
  6. BEVACIZUMAB [Suspect]
     Active Substance: BEVACIZUMAB
     Route: 042
     Dates: start: 20091125
  7. TEMSIROLIMUS [Suspect]
     Active Substance: TEMSIROLIMUS
     Indication: PANCREATIC NEOPLASM
     Dosage: ON DAYS 1, 8, 15, AND 22?LAST TREATMENT RECEIVED ON 10/MAR/2010
     Route: 042
     Dates: start: 20091028
  8. BEVACIZUMAB [Suspect]
     Active Substance: BEVACIZUMAB
     Route: 042
     Dates: start: 20100224

REACTIONS (4)
  - Stomatitis [Unknown]
  - Pulmonary haemorrhage [Unknown]
  - Hypertension [Unknown]
  - Lymphocyte count decreased [Unknown]
